FAERS Safety Report 7103541-1 (Version None)
Quarter: 2010Q4

REPORT INFORMATION
  Report Type: 
  Country: None (occurrence: None)
  Receive Date: 20101115
  Receipt Date: 20101110
  Transmission Date: 20110411
  Serious: Yes (Hospitalization)
  Sender: FDA-Public Use
  Company Number: CH-BAYER-201045822GPV

PATIENT
  Age: 81 Year
  Sex: Male

DRUGS (3)
  1. ASPIRIN [Suspect]
     Indication: PROPHYLAXIS
     Dosage: TOTAL DAILY DOSE: 100 MG
     Route: 048
     Dates: end: 20100619
  2. EUTHYROX [Concomitant]
     Dosage: TOTAL DAILY DOSE: 1 DF
     Route: 048
  3. SORTIS [Concomitant]
     Route: 048

REACTIONS (4)
  - CEREBRAL HAEMORRHAGE [None]
  - DYSARTHRIA [None]
  - HEMIPARESIS [None]
  - PRESYNCOPE [None]
